FAERS Safety Report 10730100 (Version 1)
Quarter: 2015Q1

REPORT INFORMATION
  Report Type: Spontaneous
  Country: BR (occurrence: BR)
  Receive Date: 20150122
  Receipt Date: 20150122
  Transmission Date: 20150721
  Serious: Yes (Other)
  Sender: FDA-Public Use
  Company Number: BR-PFIZER INC-2015020808

PATIENT
  Age: 61 Year
  Sex: Female
  Weight: 89 kg

DRUGS (5)
  1. ATORVASTATIN [Concomitant]
     Active Substance: ATORVASTATIN
     Indication: BLOOD CHOLESTEROL ABNORMAL
     Dosage: 1 TABLET OF 20 MG, 1X/DAY AT NIGHT
     Dates: start: 2013
  2. AROMASIN [Suspect]
     Active Substance: EXEMESTANE
     Indication: BREAST CANCER
     Dosage: 1 DRAGEE OF 25 MG, 1X/DAY
     Route: 048
     Dates: start: 20140611
  3. LOSARTAN [Concomitant]
     Active Substance: LOSARTAN
     Indication: HYPERTENSION
     Dosage: 1 TABLET, 1X/DAY
     Dates: start: 2012
  4. BESILAPIN [Concomitant]
     Indication: HYPERTENSION
     Dosage: 1 TABLET OF 5 MG, 1X/DAY
     Dates: start: 2012
  5. METFORMIN [Concomitant]
     Active Substance: METFORMIN HYDROCHLORIDE
     Indication: DIABETES MELLITUS
     Dosage: 1 TABLET OF 850 MG, 2X/DAY (IN THE MORNING AND AT NIGHT)
     Dates: start: 201309

REACTIONS (3)
  - Retinal detachment [Unknown]
  - Detachment of macular retinal pigment epithelium [Unknown]
  - Visual impairment [Unknown]

NARRATIVE: CASE EVENT DATE: 20140701
